FAERS Safety Report 23158767 (Version 2)
Quarter: 2023Q4

REPORT INFORMATION
  Report Type: Report from Study
  Country: US (occurrence: US)
  Receive Date: 20231108
  Receipt Date: 20231225
  Transmission Date: 20240110
  Serious: Yes (Disabling)
  Sender: FDA-Public Use
  Company Number: US-ABBVIE-5485435

PATIENT
  Sex: Male
  Weight: 74 kg

DRUGS (1)
  1. BOTOX [Suspect]
     Active Substance: ONABOTULINUMTOXINA
     Indication: Migraine
     Dosage: TIME INTERVAL: AS NECESSARY: EVERY THREE MONTHS, ROUTE-LEGS,
     Route: 065
     Dates: start: 20230926, end: 20230926

REACTIONS (2)
  - Muscle spasticity [Unknown]
  - Peripheral motor neuropathy [Unknown]

NARRATIVE: CASE EVENT DATE: 20230101
